FAERS Safety Report 12218481 (Version 1)
Quarter: 2016Q1

REPORT INFORMATION
  Report Type: Spontaneous
  Country: US (occurrence: US)
  Receive Date: 20160329
  Receipt Date: 20160329
  Transmission Date: 20160526
  Serious: Yes (Death, Other)
  Sender: FDA-Public Use
  Company Number: US-MDT-ADR-2016-00577

PATIENT
  Age: 72 Year
  Sex: Female

DRUGS (2)
  1. MORPHINE [Suspect]
     Active Substance: MORPHINE
     Dosage: 1.0143 MG/DAY.
     Route: 037
  2. BACLOFEN, UNKNOWN [Suspect]
     Active Substance: BACLOFEN
     Indication: MUSCLE SPASTICITY
     Dosage: 202.9 MCG/DAY
     Route: 037

REACTIONS (3)
  - Thalamic infarction [Fatal]
  - Gastrointestinal haemorrhage [Fatal]
  - Respiratory disorder [Fatal]
